FAERS Safety Report 5331063-7 (Version None)
Quarter: 2007Q2

REPORT INFORMATION
  Report Type: 
  Country: None (occurrence: None)
  Receive Date: 20070522
  Receipt Date: 20070514
  Transmission Date: 20071010
  Serious: Yes (Hospitalization)
  Sender: FDA-Public Use
  Company Number: B0471111A

PATIENT
  Age: 29 Year
  Sex: Female

DRUGS (2)
  1. AUGMENTIN '125' [Suspect]
     Dosage: 2G PER DAY
     Route: 042
     Dates: start: 20070419, end: 20070419
  2. CELESTENE [Suspect]
     Indication: INFLAMMATION
     Dosage: 6MG PER DAY
     Route: 042
     Dates: start: 20070419, end: 20070419

REACTIONS (3)
  - ERYTHEMA [None]
  - TACHYCARDIA [None]
  - VASODILATATION [None]
